FAERS Safety Report 8446167-X (Version None)
Quarter: 2012Q2

REPORT INFORMATION
  Report Type: 
  Country: None (occurrence: None)
  Receive Date: 20120618
  Receipt Date: 20120605
  Transmission Date: 20120825
  Serious: No
  Sender: FDA-Public Use
  Company Number: US-ASTRAZENECA-2010SE26017

PATIENT
  Age: 46 Year
  Sex: Female

DRUGS (4)
  1. SEROQUEL [Suspect]
     Route: 048
  2. SEROQUEL [Suspect]
     Route: 048
  3. SEROQUEL [Suspect]
     Route: 048
  4. SEROQUEL [Suspect]
     Route: 048

REACTIONS (13)
  - HEADACHE [None]
  - BRONCHITIS [None]
  - PNEUMONIA [None]
  - HOT FLUSH [None]
  - WITHDRAWAL SYNDROME [None]
  - PALPITATIONS [None]
  - CHILLS [None]
  - HYPERHIDROSIS [None]
  - FEELING OF BODY TEMPERATURE CHANGE [None]
  - MALAISE [None]
  - ANXIETY [None]
  - DRUG DOSE OMISSION [None]
  - ADVERSE DRUG REACTION [None]
